FAERS Safety Report 17574774 (Version 2)
Quarter: 2020Q1

REPORT INFORMATION
  Report Type: Report from Study
  Country: US (occurrence: US)
  Receive Date: 20200324
  Receipt Date: 20200325
  Transmission Date: 20200409
  Serious: Yes (Other)
  Sender: FDA-Public Use
  Company Number: US-ROCHE-2567602

PATIENT
  Age: 51 Year
  Sex: Female
  Weight: 79.45 kg

DRUGS (2)
  1. OCREVUS [Suspect]
     Active Substance: OCRELIZUMAB
     Indication: RELAPSING-REMITTING MULTIPLE SCLEROSIS
     Dosage: ONGOING : YES?DATE OF TREATMENT = 6/MAR/2019, 20/MAR/2019, 25/MAR/2019 AND 25/SEP/2019.
     Route: 042
     Dates: start: 201903
  2. VASCULERA [Concomitant]
     Route: 048

REACTIONS (3)
  - Upper respiratory tract infection [Recovering/Resolving]
  - Paranasal sinus discomfort [Recovered/Resolved]
  - Nasopharyngitis [Recovered/Resolved]

NARRATIVE: CASE EVENT DATE: 201910
